FAERS Safety Report 24620684 (Version 1)
Quarter: 2024Q4

REPORT INFORMATION
  Report Type: Spontaneous
  Country: US (occurrence: None)
  Receive Date: 20241114
  Receipt Date: 20241114
  Transmission Date: 20250115
  Serious: Yes (Life-Threatening, Hospitalization, Disabling, Other)
  Sender: Public
  Company Number: None

PATIENT
  Sex: Female

DRUGS (1)
  1. TESTOSTERONE CYPIONATE [Suspect]
     Active Substance: TESTOSTERONE CYPIONATE
     Indication: Gender dysphoria
     Dosage: OTHER FREQUENCY : WEEKLY;?
     Route: 030
     Dates: start: 20210712, end: 20220630

REACTIONS (2)
  - Ovarian cancer metastatic [None]
  - Treatment failure [None]
